FAERS Safety Report 8133965-5 (Version None)
Quarter: 2012Q1

REPORT INFORMATION
  Report Type: 
  Country: None (occurrence: None)
  Receive Date: 20120213
  Receipt Date: 20120202
  Transmission Date: 20120608
  Serious: Yes (Other)
  Sender: FDA-Public Use
  Company Number: US-ASTRAZENECA-2010SE38294

PATIENT
  Age: 62 Year
  Sex: Female

DRUGS (3)
  1. WATER PILL [Concomitant]
  2. CHOLESTEROL MEDICATION [Concomitant]
  3. TOPROL-XL [Suspect]
     Route: 048

REACTIONS (4)
  - ANKLE FRACTURE [None]
  - JOINT INJURY [None]
  - MULTIPLE INJURIES [None]
  - IMPAIRED WORK ABILITY [None]
